FAERS Safety Report 7124681-7 (Version None)
Quarter: 2010Q4

REPORT INFORMATION
  Report Type: 
  Country: None (occurrence: None)
  Receive Date: 20101129
  Receipt Date: 20101115
  Transmission Date: 20110411
  Serious: Yes (Hospitalization)
  Sender: FDA-Public Use
  Company Number: DE-RANBAXY-2009RR-22406

PATIENT
  Age: 76 Year
  Sex: Female

DRUGS (7)
  1. RAMIPRIL [Suspect]
     Indication: HYPERTENSION
     Dosage: 2.5 MG, QD
     Route: 048
     Dates: start: 20060601
  2. TORSEMIDE [Suspect]
     Indication: HYPERTENSION
     Dosage: 10 MG, BID
     Route: 048
     Dates: start: 20080901, end: 20080908
  3. TRIMINEURIN [Concomitant]
     Indication: SLEEP DISORDER THERAPY
     Dosage: 100 MG, QD
     Route: 048
     Dates: start: 20060601, end: 20080908
  4. ASS ^CT-ARSNEIMITTEL^ [Concomitant]
     Indication: PROPHYLAXIS
     Dosage: 150 MG, QD
     Route: 048
     Dates: start: 20060601
  5. BISOPROLOL FUMARATE [Concomitant]
     Indication: HYPERTENSION
     Dosage: 2.5 MG, BID
     Route: 048
     Dates: start: 20060601
  6. OMEPRAZOLE [Concomitant]
     Indication: MALLORY-WEISS SYNDROME
     Dosage: 20 MG, QD
     Route: 048
     Dates: start: 20080810
  7. TIAPRIDEX [Concomitant]
     Indication: TARDIVE DYSKINESIA
     Dosage: UNK
     Route: 048
     Dates: start: 20060601

REACTIONS (3)
  - DEHYDRATION [None]
  - DRUG INTERACTION [None]
  - SYNCOPE [None]
